FAERS Safety Report 7741634-6 (Version None)
Quarter: 2011Q3

REPORT INFORMATION
  Report Type: 
  Country: None (occurrence: None)
  Receive Date: 20110911
  Receipt Date: 20110831
  Transmission Date: 20111222
  Serious: Yes (Hospitalization)
  Sender: FDA-Public Use
  Company Number: IT-CELGENEUS-083-21880-11090021

PATIENT
  Sex: Female

DRUGS (8)
  1. DEXAMETHASONE [Suspect]
     Indication: MULTIPLE MYELOMA
     Dosage: 40 MILLIGRAM
     Route: 048
     Dates: start: 20110822
  2. REVLIMID [Suspect]
     Dosage: 25 MILLIGRAM
     Route: 048
     Dates: start: 20110830
  3. BACTRIM [Concomitant]
     Route: 065
     Dates: start: 20110823
  4. ACYCLOVIR [Concomitant]
     Route: 065
     Dates: start: 20110822
  5. MS CONTIN [Concomitant]
     Route: 065
     Dates: start: 20110818, end: 20110826
  6. ASPIRIN [Concomitant]
     Route: 048
     Dates: start: 20110822
  7. REVLIMID [Suspect]
     Indication: MULTIPLE MYELOMA
     Dosage: 25 MILLIGRAM
     Route: 048
     Dates: start: 20110822, end: 20110827
  8. ACETAMINOPHEN [Concomitant]
     Route: 065
     Dates: start: 20110805

REACTIONS (3)
  - BLOOD CREATININE INCREASED [None]
  - ELECTROCARDIOGRAM QT PROLONGED [None]
  - DIARRHOEA [None]
